FAERS Safety Report 11864335 (Version 1)
Quarter: 2015Q4

REPORT INFORMATION
  Report Type: Spontaneous
  Country: US (occurrence: US)
  Receive Date: 20151223
  Receipt Date: 20151223
  Transmission Date: 20160305
  Serious: No
  Sender: FDA-Public Use
  Company Number: US-ABBVIE-15P-163-1453454-00

PATIENT
  Age: 77 Year
  Sex: Male

DRUGS (1)
  1. LUPRON DEPOT [Suspect]
     Active Substance: LEUPROLIDE ACETATE
     Indication: PROSTATE CANCER
     Dosage: IM INTO RIGHT HIP
     Route: 030
     Dates: start: 201503

REACTIONS (1)
  - Injection site abscess sterile [Not Recovered/Not Resolved]

NARRATIVE: CASE EVENT DATE: 201503
